FAERS Safety Report 5799509-8 (Version None)
Quarter: 2008Q3

REPORT INFORMATION
  Report Type: 
  Country: None (occurrence: None)
  Receive Date: 20080703
  Receipt Date: 20080625
  Transmission Date: 20090109
  Serious: Yes (Hospitalization)
  Sender: FDA-Public Use
  Company Number: US-BAYER-200826573NA

PATIENT
  Age: 26 Year
  Sex: Female
  Weight: 88 kg

DRUGS (2)
  1. MIRENA [Suspect]
     Indication: ENDOMETRIOSIS
     Route: 015
     Dates: start: 20080606
  2. METFORMIN HCL [Concomitant]
     Indication: DIABETES MELLITUS
     Dosage: UNIT DOSE: 1000 MG

REACTIONS (8)
  - BLISTER [None]
  - CHILLS [None]
  - DYSPNOEA [None]
  - FUNGAL INFECTION [None]
  - HYPOAESTHESIA [None]
  - OEDEMA [None]
  - RASH GENERALISED [None]
  - SWELLING [None]
